FAERS Safety Report 25470114 (Version 1)
Quarter: 2025Q2

REPORT INFORMATION
  Report Type: Report from Study
  Country: US (occurrence: US)
  Receive Date: 20250623
  Receipt Date: 20250623
  Transmission Date: 20250716
  Serious: Yes (Other)
  Sender: ALEXION PHARMACEUTICALS
  Company Number: US-AstraZeneca-CH-00893539A

PATIENT

DRUGS (1)
  1. OSIMERTINIB [Suspect]
     Active Substance: OSIMERTINIB
     Indication: Lung neoplasm malignant
     Dosage: 80 MILLIGRAM, QD

REACTIONS (5)
  - Decreased appetite [Unknown]
  - Bronchitis [Unknown]
  - Dysphagia [Unknown]
  - Weight decreased [Unknown]
  - Taste disorder [Unknown]
